FAERS Safety Report 8747284 (Version 4)
Quarter: 2012Q4

REPORT INFORMATION
  Report Type: 
  Country: US (occurrence: US)
  Receive Date: 20120827
  Receipt Date: 20121105
  Transmission Date: 20130627
  Serious: Yes (Hospitalization, Other)
  Sender: FDA-Public Use
  Company Number: US-PFIZER INC-2012205677

PATIENT
  Age: 34 Year
  Sex: Female
  Weight: 61.22 kg

DRUGS (5)
  1. LYRICA [Suspect]
     Indication: FIBROMYALGIA
     Dosage: 50 mg, 2x/day
     Route: 048
     Dates: start: 20120727
  2. LYRICA [Suspect]
     Dosage: 50 mg four capsules, daily
     Route: 048
     Dates: start: 20120801
  3. LYRICA [Suspect]
     Dosage: 50 mg, daily
     Route: 048
     Dates: start: 20120819, end: 20120820
  4. LYRICA [Suspect]
     Dosage: UNK
     Dates: end: 20120820
  5. NORCO [Suspect]
     Indication: PAIN
     Dosage: 20/650 mg, every 4 hrs
     Route: 048
     Dates: start: 201208

REACTIONS (8)
  - Snake bite [Unknown]
  - Platelet count decreased [Unknown]
  - Coma [Recovered/Resolved]
  - Pain [Not Recovered/Not Resolved]
  - Limb discomfort [Unknown]
  - Dyspnoea [Unknown]
  - Drug ineffective [Unknown]
  - Asthenia [Unknown]
